FAERS Safety Report 7656583-1 (Version None)
Quarter: 2011Q3

REPORT INFORMATION
  Report Type: 
  Country: None (occurrence: None)
  Receive Date: 20110804
  Receipt Date: 20110509
  Transmission Date: 20111222
  Serious: No
  Sender: FDA-Public Use
  Company Number: US-BAUSCH-2011BL003046

PATIENT
  Age: 52 Year
  Sex: Female

DRUGS (2)
  1. OPCON-A [Suspect]
     Indication: MULTIPLE ALLERGIES
     Route: 047
     Dates: start: 20110505, end: 20110505
  2. FLONASE [Concomitant]

REACTIONS (1)
  - MYDRIASIS [None]
